FAERS Safety Report 24090815 (Version 1)
Quarter: 2024Q3

REPORT INFORMATION
  Report Type: Spontaneous
  Country: US (occurrence: US)
  Receive Date: 20240715
  Receipt Date: 20240715
  Transmission Date: 20241017
  Serious: Yes (Other)
  Sender: MEDEXUS PHARMA
  Company Number: US-MEDEXUS PHARMA, INC.-2024MED00299

PATIENT
  Age: 71 Year
  Sex: Female

DRUGS (13)
  1. METHOTREXATE [Suspect]
     Active Substance: METHOTREXATE
     Indication: Invasive ductal breast carcinoma
     Dosage: UNK
     Route: 037
     Dates: end: 2019
  2. METHOTREXATE [Suspect]
     Active Substance: METHOTREXATE
     Indication: B-cell lymphoma stage III
  3. RITUXIMAB [Concomitant]
     Active Substance: RITUXIMAB
     Indication: Invasive ductal breast carcinoma
     Dosage: UNK
     Dates: end: 2019
  4. RITUXIMAB [Concomitant]
     Active Substance: RITUXIMAB
     Indication: B-cell lymphoma stage III
  5. CYCLOPHOSPHAMIDE [Concomitant]
     Active Substance: CYCLOPHOSPHAMIDE
     Indication: Invasive ductal breast carcinoma
     Dosage: UNK
     Dates: end: 2019
  6. CYCLOPHOSPHAMIDE [Concomitant]
     Active Substance: CYCLOPHOSPHAMIDE
     Indication: B-cell lymphoma stage III
  7. DOXORUBICIN [Concomitant]
     Active Substance: DOXORUBICIN
     Indication: Invasive ductal breast carcinoma
     Dosage: UNK
     Dates: end: 2019
  8. DOXORUBICIN [Concomitant]
     Active Substance: DOXORUBICIN
     Indication: B-cell lymphoma stage III
  9. VINCRISTINE [Concomitant]
     Active Substance: VINCRISTINE
     Indication: Invasive ductal breast carcinoma
  10. VINCRISTINE [Concomitant]
     Active Substance: VINCRISTINE
     Indication: B-cell lymphoma stage III
  11. PREDNISONE [Concomitant]
     Active Substance: PREDNISONE
     Indication: Invasive ductal breast carcinoma
     Dosage: UNK
     Dates: end: 2019
  12. PREDNISONE [Concomitant]
     Active Substance: PREDNISONE
     Indication: B-cell lymphoma stage III
  13. DULOXETINE [Concomitant]
     Active Substance: DULOXETINE
     Indication: Neuralgia
     Dosage: 90 MG, 1X/DAY

REACTIONS (1)
  - Radiculopathy [Recovering/Resolving]

NARRATIVE: CASE EVENT DATE: 20220901
